FAERS Safety Report 5442826-1 (Version None)
Quarter: 2007Q3

REPORT INFORMATION
  Report Type: 
  Country: None (occurrence: None)
  Receive Date: 20070904
  Receipt Date: 20070831
  Transmission Date: 20080115
  Serious: Yes (Other)
  Sender: FDA-Public Use
  Company Number: GB-MERCK-0709GBR00012

PATIENT
  Age: 50 Year
  Sex: Female

DRUGS (9)
  1. ZOCOR [Suspect]
     Indication: ANGINA PECTORIS
     Route: 048
     Dates: start: 20070723, end: 20070725
  2. ZOCOR [Suspect]
     Indication: BLOOD CHOLESTEROL INCREASED
     Route: 048
     Dates: start: 20070723, end: 20070725
  3. ASPIRIN [Concomitant]
     Route: 065
  4. ACETAMINOPHEN AND DIHYDROCODEINE BITARTRATE [Concomitant]
     Route: 065
  5. IRBESARTAN [Concomitant]
     Route: 065
  6. MELOXICAM [Concomitant]
     Route: 065
  7. PANTOPRAZOLE [Concomitant]
     Route: 065
  8. DILTIAZEM HYDROCHLORIDE [Concomitant]
     Route: 065
  9. TRAMADOL HYDROCHLORIDE [Concomitant]
     Route: 065

REACTIONS (2)
  - DYSPNOEA [None]
  - THROAT TIGHTNESS [None]
